FAERS Safety Report 8138268-0 (Version None)
Quarter: 2012Q1

REPORT INFORMATION
  Report Type: 
  Country: None (occurrence: None)
  Receive Date: 20120213
  Receipt Date: 20120203
  Transmission Date: 20120608
  Serious: Yes (Other)
  Sender: FDA-Public Use
  Company Number: 2011SP054039

PATIENT
  Age: 19 Year
  Sex: Female

DRUGS (1)
  1. NEXPLANON [Suspect]
     Indication: CONTRACEPTION
     Dosage: SBDE
     Route: 059
     Dates: start: 20111102

REACTIONS (1)
  - OVARIAN CYST RUPTURED [None]
